FAERS Safety Report 25879419 (Version 1)
Quarter: 2025Q4

REPORT INFORMATION
  Report Type: Spontaneous
  Country: NZ (occurrence: NZ)
  Receive Date: 20251003
  Receipt Date: 20251003
  Transmission Date: 20260117
  Serious: Yes (Other)
  Sender: ABBVIE
  Company Number: NZ-LUNDBECK-DKLU4019717

PATIENT
  Age: 30 Year

DRUGS (1)
  1. ESCITALOPRAM [Suspect]
     Active Substance: ESCITALOPRAM OXALATE
     Indication: Product used for unknown indication
     Route: 048

REACTIONS (7)
  - Night sweats [Unknown]
  - Panic reaction [Unknown]
  - Inappropriate schedule of product discontinuation [Unknown]
  - Drug withdrawal syndrome [Unknown]
  - Akathisia [Unknown]
  - Agitation [Unknown]
  - Paraesthesia [Unknown]
